FAERS Safety Report 9766109 (Version 2)
Quarter: 2013Q4

REPORT INFORMATION
  Report Type: Report from Study
  Country: SE (occurrence: SE)
  Receive Date: 20131217
  Receipt Date: 20131226
  Transmission Date: 20140711
  Serious: Yes (Death)
  Sender: FDA-Public Use
  Company Number: SE-SHIRE-ALL1-2013-08670

PATIENT
  Age: 17 Year
  Sex: Male
  Weight: 61.2 kg

DRUGS (23)
  1. IDURSULFASE [Suspect]
     Indication: MUCOPOLYSACCHARIDOSIS II
     Dosage: 30 MG, 1X/2WKS
     Route: 041
     Dates: start: 20060927, end: 20130605
  2. NACL [Concomitant]
     Indication: PRODUCT USED FOR UNKNOWN INDICATION
     Dosage: 4 ML, ONE DOSE
     Route: 065
  3. FUROSEMIDE [Concomitant]
     Indication: CARDIOVASCULAR DISORDER
     Dosage: 40 MG, 3X/DAY:TID
     Route: 065
  4. FUROSEMIDE [Concomitant]
     Dosage: 40 MG, 1X/DAY:QD
     Route: 041
  5. FUROSEMIDE [Concomitant]
     Dosage: 30 MG, 1X/DAY:QD
     Route: 048
     Dates: start: 200806
  6. BUDESONIDE [Concomitant]
     Indication: RESPIRATORY DISORDER
     Dosage: 2 ML, 2X/DAY:BID
     Route: 065
  7. BUDESONIDE [Concomitant]
     Dosage: 1 MG, 1X/DAY:QD
     Route: 055
  8. MOVICOL                            /01625101/ [Concomitant]
     Indication: PRODUCT USED FOR UNKNOWN INDICATION
     Dosage: 1 DF, 3X/DAY:TID
     Route: 065
  9. SPIRONOLACTONE [Concomitant]
     Indication: CARDIOVASCULAR DISORDER
     Dosage: UNK (0.5 OF 25 MG) UNK, 2X/DAY:BID
     Route: 065
  10. SPIRONOLACTONE [Concomitant]
     Dosage: 12.5 MG, 1X/DAY:QD
     Route: 048
     Dates: start: 200806
  11. CREON [Concomitant]
     Indication: PRODUCT USED FOR UNKNOWN INDICATION
     Dosage: 12 DF, 2X/DAY:BID
     Route: 065
  12. MAGNESIUM [Concomitant]
     Indication: PRODUCT USED FOR UNKNOWN INDICATION
     Dosage: 375 MG, 2X/DAY:BID
     Route: 065
  13. ENALAPRIL [Concomitant]
     Indication: CARDIOVASCULAR DISORDER
     Dosage: 5 MG, 1X/DAY:QD
     Route: 048
     Dates: start: 20090409
  14. ATROVENT [Concomitant]
     Indication: PRODUCT USED FOR UNKNOWN INDICATION
     Dosage: 0.25 ML, UNKNOWN
     Route: 065
  15. VENTOLINE                          /00139501/ [Concomitant]
     Indication: PRODUCT USED FOR UNKNOWN INDICATION
     Dosage: 2 MG, 3X/DAY:TID
     Route: 065
  16. PANODIL [Concomitant]
     Indication: PRODUCT USED FOR UNKNOWN INDICATION
     Dosage: 500 MG, AS REQ^D
     Route: 065
  17. IBUPROFEN [Concomitant]
     Indication: PRODUCT USED FOR UNKNOWN INDICATION
     Dosage: 500 MG, AS REQ^D
     Route: 065
  18. IBUPROFEN [Concomitant]
     Dosage: 125 MG, AS REQ^D
     Route: 054
  19. CARDIORON [Concomitant]
     Indication: PRODUCT USED FOR UNKNOWN INDICATION
     Dosage: 20 GTT, OTHER
     Route: 048
  20. GENISTEIN [Concomitant]
     Indication: PRODUCT USED FOR UNKNOWN INDICATION
     Dosage: 180 MG, 1X/DAY:QD
     Route: 048
  21. SALBUTAMOL [Concomitant]
     Indication: RESPIRATORY DISORDER
     Dosage: 2 MG, 4X/DAY:QID
     Route: 055
  22. IPRATROPIUM [Concomitant]
     Indication: RESPIRATORY DISORDER
     Dosage: 0.25 MG, 4X/DAY:QID
     Route: 055
  23. PARACETAMOL [Concomitant]
     Indication: PAIN
     Dosage: 500 MG, AS REQ^D
     Route: 054

REACTIONS (2)
  - Respiratory failure [Fatal]
  - Circulatory collapse [Fatal]
